FAERS Safety Report 5721450-7 (Version None)
Quarter: 2008Q2

REPORT INFORMATION
  Report Type: 
  Country: None (occurrence: None)
  Receive Date: 20080429
  Receipt Date: 20080422
  Transmission Date: 20081010
  Serious: Yes (Hospitalization)
  Sender: FDA-Public Use
  Company Number: FR-ASTRAZENECA-2008CG00622

PATIENT
  Age: 20295 Day
  Sex: Male
  Weight: 97 kg

DRUGS (4)
  1. XYLOCAINE VISCOUS [Suspect]
     Route: 048
     Dates: start: 20080402, end: 20080402
  2. CORTANCYL [Concomitant]
     Indication: DRUG RASH WITH EOSINOPHILIA AND SYSTEMIC SYMPTOMS
     Route: 048
  3. DIFFU K [Concomitant]
  4. CALCIDOSE D3 [Concomitant]

REACTIONS (2)
  - FACE OEDEMA [None]
  - RASH PUSTULAR [None]
